FAERS Safety Report 7775320-3 (Version None)
Quarter: 2011Q3

REPORT INFORMATION
  Report Type: 
  Country: None (occurrence: None)
  Receive Date: 20110923
  Receipt Date: 20110916
  Transmission Date: 20111222
  Serious: Yes (Other)
  Sender: FDA-Public Use
  Company Number: US-GLAXOSMITHKLINE-A0944978A

PATIENT
  Age: 53 Year
  Sex: Female

DRUGS (1)
  1. BEXXAR [Suspect]
     Indication: LYMPHOMA
     Dates: start: 20070101

REACTIONS (1)
  - SARCOMA UTERUS [None]
